FAERS Safety Report 14470424 (Version 2)
Quarter: 2018Q1

REPORT INFORMATION
  Report Type: Report from Study
  Country: PE (occurrence: PE)
  Receive Date: 20180131
  Receipt Date: 20180205
  Transmission Date: 20180509
  Serious: Yes (Other)
  Sender: FDA-Public Use
  Company Number: PE-SA-2017SA106742

PATIENT
  Age: 32 Year
  Sex: Female
  Weight: 47 kg

DRUGS (8)
  1. CEREZYME [Suspect]
     Active Substance: IMIGLUCERASE
     Indication: GAUCHER^S DISEASE
     Dosage: DOSE:60 UNIT(S)/KILOGRAM BODYWEIGHT
     Route: 041
     Dates: start: 20141104, end: 20170706
  2. CALCIUM [Concomitant]
     Active Substance: CALCIUM
     Route: 048
     Dates: start: 20170727
  3. PROPRANOLOL [Concomitant]
     Active Substance: PROPRANOLOL HYDROCHLORIDE
     Route: 065
  4. PROPRANOLOL [Concomitant]
     Active Substance: PROPRANOLOL HYDROCHLORIDE
     Route: 065
  5. IRON [Concomitant]
     Active Substance: IRON
     Route: 065
     Dates: start: 201606
  6. PROGESTERONE. [Suspect]
     Active Substance: PROGESTERONE
     Indication: ABDOMINAL PAIN LOWER
     Route: 048
  7. FOLIC ACID. [Concomitant]
     Active Substance: FOLIC ACID
     Route: 048
     Dates: start: 2003
  8. CEREZYME [Suspect]
     Active Substance: IMIGLUCERASE
     Indication: GAUCHER^S DISEASE
     Dosage: DOSE:60 UNIT(S)/KILOGRAM BODYWEIGHT
     Route: 041
     Dates: start: 20170806

REACTIONS (8)
  - Exposure during pregnancy [Unknown]
  - Pulmonary oedema [Recovered/Resolved]
  - Malaise [Unknown]
  - Abdominal pain lower [Recovered/Resolved]
  - Respiratory distress [Unknown]
  - Somnolence [Recovered/Resolved]
  - Dyspepsia [Recovered/Resolved]
  - Uterine atony [Recovered/Resolved]

NARRATIVE: CASE EVENT DATE: 201701
